FAERS Safety Report 20134150 (Version 2)
Quarter: 2022Q1

REPORT INFORMATION
  Report Type: Report from Study
  Country: CA (occurrence: CA)
  Receive Date: 20211201
  Receipt Date: 20220104
  Transmission Date: 20220423
  Serious: Yes (Hospitalization)
  Sender: FDA-Public Use
  Company Number: CA-ABBVIE-21K-028-4170153-00

PATIENT
  Sex: Female

DRUGS (3)
  1. RINVOQ [Suspect]
     Active Substance: UPADACITINIB
     Indication: Rheumatoid arthritis
     Route: 048
     Dates: start: 20210519, end: 20211105
  2. RINVOQ [Suspect]
     Active Substance: UPADACITINIB
     Route: 048
     Dates: start: 2021, end: 2021
  3. XELJANZ [Suspect]
     Active Substance: TOFACITINIB CITRATE
     Indication: Thrombosis
     Route: 065
     Dates: end: 2021

REACTIONS (6)
  - COVID-19 [Unknown]
  - Limb discomfort [Not Recovered/Not Resolved]
  - Inflammation [Unknown]
  - Coagulation factor increased [Unknown]
  - Fibrin D dimer increased [Unknown]
  - Thrombosis [Unknown]

NARRATIVE: CASE EVENT DATE: 20210101
